FAERS Safety Report 10369002 (Version 2)
Quarter: 2014Q3

REPORT INFORMATION
  Report Type: Spontaneous
  Country: US (occurrence: US)
  Receive Date: 20140807
  Receipt Date: 20140908
  Transmission Date: 20150326
  Serious: No
  Sender: FDA-Public Use
  Company Number: US-ASTRAZENECA-2014SE55011

PATIENT
  Age: 787 Month
  Sex: Female
  Weight: 90.7 kg

DRUGS (6)
  1. MONTELUKAST [Concomitant]
     Active Substance: MONTELUKAST SODIUM
     Indication: ASTHMA
     Route: 048
  2. LEVALBUTEROL [Concomitant]
     Active Substance: LEVALBUTEROL
     Dosage: 1.25MG 3ML PRN
     Route: 055
     Dates: start: 2012
  3. XOPENEX [Concomitant]
     Active Substance: LEVALBUTEROL HYDROCHLORIDE
     Dosage: UNKNOWN UNK
  4. SYMBICORT [Suspect]
     Active Substance: BUDESONIDE\FORMOTEROL FUMARATE DIHYDRATE
     Indication: ASTHMA
     Dosage: 80/4.5, 2 PUFFS, DAILY
     Route: 055
     Dates: start: 201404
  5. SYMBICORT [Suspect]
     Active Substance: BUDESONIDE\FORMOTEROL FUMARATE DIHYDRATE
     Indication: ASTHMA
     Dosage: 80/4.5, 2 PUFFS, TWO TIMES A DAY
     Route: 055
     Dates: start: 201404
  6. SYMBICORT [Suspect]
     Active Substance: BUDESONIDE\FORMOTEROL FUMARATE DIHYDRATE
     Indication: ASTHMA
     Dosage: 80/4.5, 1 PUFFS, AS REQUIRED
     Route: 055
     Dates: start: 201404

REACTIONS (3)
  - Medication error [Unknown]
  - Dyspnoea [Not Recovered/Not Resolved]
  - Intentional product misuse [Unknown]

NARRATIVE: CASE EVENT DATE: 201404
